FAERS Safety Report 9444936 (Version 5)
Quarter: 2019Q2

REPORT INFORMATION
  Report Type: Spontaneous
  Country: CA (occurrence: CA)
  Receive Date: 20130807
  Receipt Date: 20190410
  Transmission Date: 20190711
  Serious: Yes (Hospitalization)
  Sender: FDA-Public Use
  Company Number: CA-ROCHE-1257967

PATIENT
  Age: 52 Year
  Sex: Female

DRUGS (2)
  1. XOLAIR [Suspect]
     Active Substance: OMALIZUMAB
     Route: 058
     Dates: start: 20190125
  2. XOLAIR [Suspect]
     Active Substance: OMALIZUMAB
     Indication: ASTHMA
     Route: 058
     Dates: start: 20100618

REACTIONS (14)
  - Productive cough [Unknown]
  - Chest pain [Unknown]
  - Nasal congestion [Unknown]
  - Open fracture [Unknown]
  - Wrist fracture [Unknown]
  - Nasopharyngitis [Unknown]
  - Fall [Unknown]
  - Sputum discoloured [Unknown]
  - Gastrooesophageal reflux disease [Recovering/Resolving]
  - Sinusitis [Unknown]
  - Asthma [Unknown]
  - Breath sounds abnormal [Unknown]
  - Upper respiratory tract infection [Unknown]
  - Obesity [Unknown]

NARRATIVE: CASE EVENT DATE: 20130730
